FAERS Safety Report 14061408 (Version 1)
Quarter: 2017Q4

REPORT INFORMATION
  Report Type: Spontaneous
  Country: AU (occurrence: AU)
  Receive Date: 20171009
  Receipt Date: 20171009
  Transmission Date: 20180321
  Serious: Yes (Hospitalization, Other)
  Sender: FDA-Public Use
  Company Number: AU-009507513-1710AUS002011

PATIENT
  Sex: Male

DRUGS (3)
  1. HYDROCHLOROTHIAZIDE (+) VERAPAMIL HYDROCHLORIDE [Concomitant]
     Indication: BLOOD PRESSURE ABNORMAL
  2. CHOLESTEROL [Concomitant]
     Active Substance: CHOLESTEROL
  3. SIMVASTATIN. [Suspect]
     Active Substance: SIMVASTATIN
     Indication: ATRIAL FIBRILLATION
     Route: 048

REACTIONS (4)
  - Fatigue [Unknown]
  - Seizure [Unknown]
  - Myalgia [Unknown]
  - Product quality issue [Unknown]
